FAERS Safety Report 14022225 (Version 1)
Quarter: 2017Q3

REPORT INFORMATION
  Report Type: Other
  Country: JP (occurrence: JP)
  Receive Date: 20170928
  Receipt Date: 20170928
  Transmission Date: 20171128
  Serious: Yes (Hospitalization, Other)
  Sender: FDA-Public Use
  Company Number: JP-ALSI-201700325

PATIENT
  Age: 7 Month
  Sex: Female

DRUGS (1)
  1. EKIKA SANSO OXYGEN 100% [Suspect]
     Active Substance: OXYGEN
     Indication: NEONATAL ASPHYXIA
     Route: 055

REACTIONS (1)
  - Hepatoblastoma [Not Recovered/Not Resolved]
